FAERS Safety Report 7682643-5 (Version None)
Quarter: 2011Q3

REPORT INFORMATION
  Report Type: 
  Country: None (occurrence: None)
  Receive Date: 20110815
  Receipt Date: 20110808
  Transmission Date: 20111222
  Serious: Yes (Death)
  Sender: FDA-Public Use
  Company Number: IE-MEDIMMUNE-MEDI-0013198

PATIENT
  Sex: Female

DRUGS (1)
  1. SYNAGIS [Suspect]
     Indication: OSTEOGENESIS IMPERFECTA
     Route: 030
     Dates: start: 20110101, end: 20110303

REACTIONS (1)
  - OSTEOGENESIS IMPERFECTA [None]
